FAERS Safety Report 17493041 (Version 1)
Quarter: 2020Q1

REPORT INFORMATION
  Report Type: Spontaneous
  Country: DK (occurrence: DK)
  Receive Date: 20200303
  Receipt Date: 20200303
  Transmission Date: 20200409
  Serious: Yes (Other)
  Sender: FDA-Public Use
  Company Number: DK-BAYER-2020-035252

PATIENT
  Age: 15 Year
  Sex: Male

DRUGS (1)
  1. JIVI [Suspect]
     Active Substance: DAMOCTOCOG ALFA PEGOL
     Indication: FACTOR VIII DEFICIENCY
     Dosage: TOTAL OF 4 DOSES

REACTIONS (7)
  - Mydriasis [None]
  - Drug hypersensitivity [None]
  - Feeling abnormal [None]
  - Rash [None]
  - Ocular hyperaemia [None]
  - Malaise [None]
  - Feeling hot [None]
